FAERS Safety Report 4809280-1 (Version None)
Quarter: 2005Q4

REPORT INFORMATION
  Report Type: 
  Country: None (occurrence: None)
  Receive Date: 20051021
  Receipt Date: 20051012
  Transmission Date: 20060501
  Serious: Yes (Death, Other)
  Sender: FDA-Public Use
  Company Number: 2005-07-0265

PATIENT
  Age: 56 Year
  Sex: Male
  Weight: 58 kg

DRUGS (17)
  1. PEG-INTRON [Suspect]
     Indication: HEPATITIS C
     Dosage: 50 OR 100 MCG SUBCUTANEO
     Route: 058
     Dates: start: 20041214, end: 20050531
  2. REBETOL [Suspect]
     Indication: HEPATITIS C
     Dosage: 800 MG ORAL
     Route: 048
     Dates: start: 20041214, end: 20050531
  3. MUCODYNE TABLETS [Concomitant]
  4. ZOPICLONE TABLETS [Concomitant]
  5. RILMAZAFONE HYDROCHLORIDE TABLETS [Concomitant]
  6. DEPAS TABLETS [Concomitant]
  7. SERENACE TABLETS [Concomitant]
  8. LENDORMIN TABLETS [Concomitant]
  9. DIAZEPAM [Concomitant]
  10. URSO TABLETS [Concomitant]
  11. GLYCYRON TABLETS [Concomitant]
  12. OMEPRAZOLE [Concomitant]
  13. AMLODIPINE TABLETS [Concomitant]
  14. NU-LOTAN (LOSARTAN POTASSIUM) TABLETS [Concomitant]
  15. HERLAT-MINI CAPSULES [Concomitant]
  16. ASPIRIN [Concomitant]
  17. .. [Concomitant]

REACTIONS (4)
  - CEREBRAL INFARCTION [None]
  - DIZZINESS [None]
  - MALAISE [None]
  - TINNITUS [None]
